FAERS Safety Report 5783050-2 (Version None)
Quarter: 2008Q2

REPORT INFORMATION
  Report Type: 
  Country: None (occurrence: None)
  Receive Date: 20080624
  Receipt Date: 20080604
  Transmission Date: 20081010
  Serious: Yes (Life-Threatening, Hospitalization, Other)
  Sender: FDA-Public Use
  Company Number: SE-ABBOTT-08P-150-0454027-00

PATIENT
  Age: 63 Year
  Sex: Male
  Weight: 116.2 kg

DRUGS (21)
  1. ZEMPLAR [Suspect]
     Indication: DRUG USE FOR UNKNOWN INDICATION
     Dosage: 50MCG/ML
     Route: 050
  2. LANTUS OPTISET PRE-FILLED PEN [Concomitant]
     Indication: BLOOD GLUCOSE INCREASED
     Dosage: 100 UNITS/ML
  3. REPAGLINIDE [Concomitant]
     Indication: BLOOD GLUCOSE INCREASED
     Dosage: TWICE A DAY WITH MEAL
     Route: 048
  4. ORALVITE [Concomitant]
     Indication: DRUG USE FOR UNKNOWN INDICATION
     Dosage: DAILY
     Route: 048
  5. ASPIRIN [Concomitant]
     Indication: THROMBOSIS PROPHYLAXIS
     Route: 048
  6. SACCHARATED IRON OXIDE [Concomitant]
     Indication: MINERAL SUPPLEMENTATION
     Route: 042
  7. FOLACIN [Concomitant]
     Indication: VITAMIN SUPPLEMENTATION
     Dosage: 2 TABLETS TWICE A DAY FOR ONE MONTH, THEN 5MG PER DAY
     Route: 048
  8. FUROSEMIDE [Concomitant]
     Indication: DIURETIC THERAPY
     Dosage: HALF OF 500MG TAB ON NON-DIALYSIS DAYS
     Route: 048
  9. ATENOLOL [Concomitant]
     Indication: DRUG USE FOR UNKNOWN INDICATION
     Route: 048
  10. CANDESARTAN CILEXETIL [Concomitant]
     Indication: RENAL DISORDER
     Route: 048
  11. CANDESARTAN CILEXETIL [Concomitant]
     Indication: BLOOD PRESSURE
  12. LERCANIDIPINE HYDROCHLORIDE [Concomitant]
     Indication: BLOOD PRESSURE
     Dosage: 1 TABLET NON-DIALYSIS DAYS
     Route: 048
  13. ATORVASTATIN CALCIUM [Concomitant]
     Indication: BLOOD CHOLESTEROL INCREASED
     Route: 048
  14. PROPYLENGLYKOL IN ESSEX CREAM 20% [Concomitant]
     Indication: PROPHYLAXIS
     Route: 061
  15. PROPYLENGLYKOL IN ESSEX CREAM 20% [Concomitant]
     Indication: PRURITUS
  16. CLEMASTINE FUMARATE [Concomitant]
     Indication: PROPHYLAXIS
     Dosage: 1 MG TAB, 1-4 TIMES A DAY WHEN NEEDED
     Route: 048
  17. CLEMASTINE FUMARATE [Concomitant]
     Indication: PRURITUS
  18. CHLOROMYCETIN [Concomitant]
     Indication: EYE INFECTION
  19. LANTHANUM CARBONATE [Concomitant]
     Indication: HYPERPHOSPHATAEMIA
     Dosage: 750 MG, 2 TABLETS PER DAY WITH FOOD
     Route: 048
  20. EFEDRIN KOMP [Concomitant]
     Indication: PROPHYLAXIS
     Route: 048
  21. EFEDRIN KOMP [Concomitant]
     Indication: COUGH

REACTIONS (6)
  - ARTERIOSCLEROSIS [None]
  - CARDIAC ARREST [None]
  - ELECTROCARDIOGRAM ST SEGMENT ELEVATION [None]
  - LOSS OF CONSCIOUSNESS [None]
  - RALES [None]
  - VENTRICULAR FIBRILLATION [None]
